FAERS Safety Report 10040476 (Version 2)
Quarter: 2014Q2

REPORT INFORMATION
  Report Type: Spontaneous
  Country: GB (occurrence: GB)
  Receive Date: 20140327
  Receipt Date: 20140404
  Transmission Date: 20141212
  Serious: Yes (Other)
  Sender: FDA-Public Use
  Company Number: GB-ORION CORPORATION ORION PHARMA-SEL 2014-0003

PATIENT
  Age: 60 Year
  Sex: Female

DRUGS (8)
  1. ELDEPRYL [Suspect]
     Indication: PARKINSON^S DISEASE
     Dosage: STRENGTH: 10 MG
     Route: 048
     Dates: start: 20070810
  2. ENTACAPONE ORION [Suspect]
     Route: 065
     Dates: start: 20121214
  3. PREGABALIN [Concomitant]
     Dosage: 300
     Route: 065
  4. MADOPAR [Concomitant]
     Dosage: 62.5
     Route: 065
  5. MADOPAR CR [Concomitant]
     Route: 065
  6. SOLIFENACIN [Concomitant]
     Route: 065
  7. ALENDRONIC ACID [Concomitant]
     Route: 065
  8. ADCAL D3 [Concomitant]
     Route: 065

REACTIONS (3)
  - Ovarian cancer [Not Recovered/Not Resolved]
  - Myalgia [Not Recovered/Not Resolved]
  - Musculoskeletal stiffness [Unknown]
